FAERS Safety Report 15796164 (Version 4)
Quarter: 2019Q2

REPORT INFORMATION
  Report Type: Spontaneous
  Country: US (occurrence: US)
  Receive Date: 20190108
  Receipt Date: 20190511
  Transmission Date: 20190711
  Serious: No
  Sender: FDA-Public Use
  Company Number: US-TEVA-2018-US-986060

PATIENT
  Age: 77 Year
  Sex: Male

DRUGS (4)
  1. PRAVASTATIN SODIUM TABLETS [Suspect]
     Active Substance: PRAVASTATIN SODIUM
     Indication: BLOOD CHOLESTEROL INCREASED
     Route: 065
     Dates: start: 201806
  2. PRAVASTATIN SODIUM TABLETS [Suspect]
     Active Substance: PRAVASTATIN SODIUM
     Route: 065
     Dates: start: 2014
  3. ATORVASTATIN [Concomitant]
     Active Substance: ATORVASTATIN
     Route: 065
     Dates: start: 201806
  4. PRAVASTATIN SODIUM TABLETS [Suspect]
     Active Substance: PRAVASTATIN SODIUM
     Route: 065
     Dates: start: 201712

REACTIONS (4)
  - Ligament rupture [Not Recovered/Not Resolved]
  - Arthralgia [Not Recovered/Not Resolved]
  - Arthropathy [Not Recovered/Not Resolved]
  - Feeling abnormal [Not Recovered/Not Resolved]

NARRATIVE: CASE EVENT DATE: 201806
